FAERS Safety Report 16481241 (Version 2)
Quarter: 2019Q2

REPORT INFORMATION
  Report Type: Spontaneous
  Country: KZ (occurrence: KZ)
  Receive Date: 20190626
  Receipt Date: 20190626
  Transmission Date: 20190711
  Serious: Yes (Death, Hospitalization, Other)
  Sender: FDA-Public Use
  Company Number: PHHY2019KZ145443

PATIENT
  Age: 29 Year
  Sex: Male
  Weight: 48.5 kg

DRUGS (8)
  1. CLOFAZIMINE [Suspect]
     Active Substance: CLOFAZIMINE
     Indication: TUBERCULOSIS
     Dosage: 200 MG, QD
     Route: 048
     Dates: start: 20170207, end: 20181010
  2. CAPREOMYCIN [Suspect]
     Active Substance: CAPREOMYCIN
     Indication: TUBERCULOSIS
     Dosage: 1000 MG, QD
     Route: 030
     Dates: start: 20170207, end: 20171101
  3. LEVOFLOXACIN. [Suspect]
     Active Substance: LEVOFLOXACIN
     Indication: TUBERCULOSIS
     Dosage: 1000 MG, QD
     Route: 048
     Dates: start: 20170207, end: 20171010
  4. LINEZOLID. [Suspect]
     Active Substance: LINEZOLID
     Dosage: 300 MG, QD
     Route: 048
     Dates: start: 20170630, end: 20181010
  5. DELAMANID [Suspect]
     Active Substance: DELAMANID
     Indication: TUBERCULOSIS
     Dosage: 200 MG, QD
     Route: 048
     Dates: start: 20170207, end: 20170727
  6. PYRAZINAMIDE. [Suspect]
     Active Substance: PYRAZINAMIDE
     Indication: TUBERCULOSIS
     Dosage: 2000 MG, QD
     Route: 048
     Dates: start: 20170207, end: 20171101
  7. LINEZOLID. [Suspect]
     Active Substance: LINEZOLID
     Indication: TUBERCULOSIS
     Dosage: 600 MG, QD
     Route: 048
     Dates: start: 20170207
  8. BEDAQUILINE [Suspect]
     Active Substance: BEDAQUILINE
     Indication: TUBERCULOSIS
     Dosage: 400 MG, QD
     Route: 048
     Dates: start: 20170207, end: 20181010

REACTIONS (21)
  - Chest pain [Fatal]
  - Cough [Fatal]
  - Cardiac failure [Unknown]
  - Cachexia [Unknown]
  - Dyspnoea at rest [Unknown]
  - Hyperhidrosis [Unknown]
  - Hypothermia [Unknown]
  - Skin turgor decreased [Unknown]
  - Incorrect product administration duration [Unknown]
  - Asthenia [Fatal]
  - Poisoning [Unknown]
  - Respiratory rate decreased [Unknown]
  - Body temperature increased [Unknown]
  - Decreased appetite [Unknown]
  - Chronic obstructive pulmonary disease [Fatal]
  - Sputum purulent [Fatal]
  - Dyspnoea [Fatal]
  - Back pain [Unknown]
  - Respiratory failure [Unknown]
  - Dry skin [Unknown]
  - Skin discolouration [Unknown]

NARRATIVE: CASE EVENT DATE: 20181103
